FAERS Safety Report 8430877 (Version 3)
Quarter: 2015Q4

REPORT INFORMATION
  Report Type: Report from Study
  Country: CA (occurrence: CA)
  Receive Date: 20120228
  Receipt Date: 20151214
  Transmission Date: 20160305
  Serious: Yes (Other)
  Sender: FDA-Public Use
  Company Number: CA-UCBSA-052064

PATIENT
  Age: 46 Year
  Sex: Female
  Weight: 73 kg

DRUGS (12)
  1. PANTALOC [Concomitant]
     Indication: GASTRIC ULCER
     Dosage: 40 MG, ONCE DAILY (QD)
     Route: 048
  2. CLONAZEPAM. [Concomitant]
     Active Substance: CLONAZEPAM
     Indication: SLEEP DISORDER
     Dosage: DOSE PER INTAKE: 1-2 MG
     Route: 048
     Dates: start: 2010
  3. PREDNISONE. [Concomitant]
     Active Substance: PREDNISONE
     Indication: RHEUMATOID ARTHRITIS
     Dosage: 20 MG, UNK
     Route: 048
     Dates: start: 2010
  4. TYLENOL [Concomitant]
     Active Substance: ACETAMINOPHEN
     Indication: HEADACHE
     Dosage: 1 GM
     Dates: start: 201202
  5. CERTOLIZUMAB PEGOL RA [Suspect]
     Active Substance: CERTOLIZUMAB PEGOL
     Indication: RHEUMATOID ARTHRITIS
     Dosage: 400 MG
     Route: 058
     Dates: start: 20120216, end: 20120216
  6. PREDNISONE. [Concomitant]
     Active Substance: PREDNISONE
     Dosage: 20 MG, UNK
     Route: 048
     Dates: start: 20120216, end: 201202
  7. ADVIL [Concomitant]
     Active Substance: IBUPROFEN
     Dosage: 600 MG
     Dates: start: 20120217
  8. ADVIL [Concomitant]
     Active Substance: IBUPROFEN
     Indication: HEADACHE
     Dosage: 300 MG
     Dates: start: 201202, end: 201202
  9. CLONAZEPAM. [Concomitant]
     Active Substance: CLONAZEPAM
     Indication: ANXIOLYTIC THERAPY
  10. PREDNISONE. [Concomitant]
     Active Substance: PREDNISONE
     Dosage: DAILY: 40 MG
     Route: 048
     Dates: start: 20120218
  11. PERCOCET [Concomitant]
     Active Substance: ACETAMINOPHEN\OXYCODONE HYDROCHLORIDE
     Indication: PAIN
     Dosage: 2 TO 4 TABS AS NEEDED
     Route: 048
     Dates: start: 2010
  12. BENADRYL [Concomitant]
     Active Substance: DIPHENHYDRAMINE HYDROCHLORIDE
     Indication: PRODUCT USED FOR UNKNOWN INDICATION
     Dosage: 50 MG, EVERY 4 HOURS
     Route: 048
     Dates: start: 20120216

REACTIONS (19)
  - Headache [Not Recovered/Not Resolved]
  - Chills [Unknown]
  - Swelling face [Recovered/Resolved]
  - Chest discomfort [Unknown]
  - Nausea [Not Recovered/Not Resolved]
  - Fatigue [Unknown]
  - Choking sensation [Unknown]
  - Rash generalised [Not Recovered/Not Resolved]
  - Blister [Unknown]
  - Chest pain [Recovering/Resolving]
  - Local swelling [Recovering/Resolving]
  - Vomiting [Not Recovered/Not Resolved]
  - Diarrhoea [Not Recovered/Not Resolved]
  - Dizziness [Unknown]
  - Tachycardia [Unknown]
  - Asthenia [Unknown]
  - Arthralgia [Not Recovered/Not Resolved]
  - Pollakiuria [Unknown]
  - Throat tightness [Not Recovered/Not Resolved]

NARRATIVE: CASE EVENT DATE: 20120216
